FAERS Safety Report 5351340-3 (Version None)
Quarter: 2007Q2

REPORT INFORMATION
  Report Type: 
  Country: None (occurrence: None)
  Receive Date: 20070608
  Receipt Date: 20070516
  Transmission Date: 20071010
  Serious: Yes (Hospitalization)
  Sender: FDA-Public Use
  Company Number: UA-BOEHRINGER INGELHEIM PHARMACEUTICALS, INC.-2007-AP-00184AP

PATIENT
  Age: 55 Year
  Sex: Male

DRUGS (5)
  1. AGGRENOX [Suspect]
     Indication: ISCHAEMIC STROKE
     Dosage: 200/25MG TWICE DAILY
     Route: 048
     Dates: start: 20070228, end: 20070301
  2. NOOTROPIL [Concomitant]
  3. FRAXIPARINE [Concomitant]
  4. CAVINTON [Concomitant]
  5. DIROTON [Concomitant]

REACTIONS (3)
  - ALANINE AMINOTRANSFERASE INCREASED [None]
  - ASPARTATE AMINOTRANSFERASE INCREASED [None]
  - HEADACHE [None]
